FAERS Safety Report 12220326 (Version 1)
Quarter: 2016Q1

REPORT INFORMATION
  Report Type: Spontaneous
  Country: US (occurrence: None)
  Receive Date: 20160329
  Receipt Date: 20160329
  Transmission Date: 20160526
  Serious: Yes (Hospitalization)
  Sender: FDA-Public Use
  Company Number: None

PATIENT
  Age: 78 Year
  Sex: Male
  Weight: 65 kg

DRUGS (2)
  1. METOPROLOL. [Suspect]
     Active Substance: METOPROLOL
     Indication: HYPERTENSION
     Route: 048
     Dates: start: 20091217, end: 20151025
  2. DILTIAZEM [Suspect]
     Active Substance: DILTIAZEM
     Indication: HYPERTENSION
     Dosage: MG
     Route: 048
     Dates: start: 20011217, end: 20151025

REACTIONS (7)
  - Dyspnoea [None]
  - Glaucoma [None]
  - Atrioventricular block first degree [None]
  - Chest discomfort [None]
  - Sinus bradycardia [None]
  - Hypotension [None]
  - Nodal arrhythmia [None]

NARRATIVE: CASE EVENT DATE: 20151024
